FAERS Safety Report 13758167 (Version 1)
Quarter: 2017Q3

REPORT INFORMATION
  Report Type: Spontaneous
  Country: US (occurrence: US)
  Receive Date: 20170717
  Receipt Date: 20170717
  Transmission Date: 20171127
  Serious: No
  Sender: FDA-Public Use
  Company Number: US-APOTEX-2016AP014399

PATIENT
  Age: 59 Year
  Sex: Male

DRUGS (2)
  1. ATORVASTATIN CALCIUM. [Suspect]
     Active Substance: ATORVASTATIN CALCIUM
     Indication: HYPERCHOLESTEROLAEMIA
     Dosage: 10 MG, PER DAY
     Route: 065
     Dates: start: 201512, end: 201605
  2. HYDROCODONE [Concomitant]
     Active Substance: HYDROCODONE
     Indication: HERNIA PAIN
     Dosage: UNK
     Route: 065

REACTIONS (2)
  - Hypoaesthesia [Unknown]
  - Off label use [Unknown]
